FAERS Safety Report 10710407 (Version 1)
Quarter: 2015Q1

REPORT INFORMATION
  Report Type: Spontaneous
  Country: IT (occurrence: None)
  Receive Date: 20150112
  Receipt Date: 20150112
  Transmission Date: 20150721
  Serious: Yes (Hospitalization)
  Sender: FDA-Public Use
  Company Number: 2694447

PATIENT
  Age: 55 Year
  Sex: Male
  Weight: 82 kg

DRUGS (4)
  1. ERBITUX [Suspect]
     Active Substance: CETUXIMAB
     Indication: COLON CANCER
     Route: 041
     Dates: start: 20140203
  2. IRINOTECAN HYDROCHLORIDE. [Suspect]
     Active Substance: IRINOTECAN HYDROCHLORIDE
     Indication: COLON CANCER
     Dosage: 245 MG MILIGRAMS (CYCLICAL) INTRAVENOUS DRIP?
     Route: 041
     Dates: start: 20140203
  3. LANSOPRAZOLE. [Concomitant]
     Active Substance: LANSOPRAZOLE
  4. FLUOROURACILE [Suspect]
     Active Substance: FLUOROURACIL
     Indication: COLON NEOPLASM
     Dosage: 2800 MG MILLIGRAMS (CYCLICAL) INTRAVENOUS (NOT OTHERWISE SPECIFIED)?
     Route: 042
     Dates: start: 20140203

REACTIONS (10)
  - Skin toxicity [None]
  - Skin lesion [None]
  - Joint effusion [None]
  - Immunosuppression [None]
  - Superinfection [None]
  - Culture urine positive [None]
  - Staphylococcal bacteraemia [None]
  - Staphylococcus test positive [None]
  - Intervertebral discitis [None]
  - Condition aggravated [None]

NARRATIVE: CASE EVENT DATE: 20140402
